FAERS Safety Report 9162426 (Version 1)
Quarter: 2013Q1

REPORT INFORMATION
  Report Type: Not Available
  Country: GB (occurrence: GB)
  Receive Date: 20130314
  Receipt Date: 20130314
  Transmission Date: 20140127
  Serious: Yes (Life-Threatening)
  Sender: FDA-Public Use
  Company Number: GB-ASTELLAS-2013EU002148

PATIENT
  Age: 58 Year
  Sex: Male

DRUGS (5)
  1. TACROLIMUS SYSTEMIC [Suspect]
     Dosage: UNK
     Route: 065
  2. ACICLOVIR [Suspect]
     Dosage: UNK
     Route: 065
  3. CIPROFLOXACIN [Suspect]
     Dosage: UNK
     Route: 065
     Dates: start: 20130216, end: 20130221
  4. COTRIMOXAZOLE [Suspect]
     Dosage: UNK
     Route: 065
  5. LANSOPRAZOLE [Suspect]
     Dosage: UNK
     Route: 065

REACTIONS (1)
  - Idiopathic thrombocytopenic purpura [Recovering/Resolving]
